FAERS Safety Report 5365568-X (Version None)
Quarter: 2007Q2

REPORT INFORMATION
  Report Type: 
  Country: None (occurrence: None)
  Receive Date: 20070621
  Receipt Date: 20070615
  Transmission Date: 20071010
  Serious: Yes (Hospitalization)
  Sender: FDA-Public Use
  Company Number: JP-ASTRAZENECA-2007AP02732

PATIENT
  Age: 83 Year
  Sex: Male

DRUGS (2)
  1. ZOLADEX [Suspect]
     Indication: PROSTATE CANCER
     Route: 058
     Dates: start: 20070208
  2. ZOLADEX [Suspect]
     Route: 058
     Dates: start: 20070601

REACTIONS (1)
  - LIVER FUNCTION TEST ABNORMAL [None]
